FAERS Safety Report 5477466-1 (Version None)
Quarter: 2007Q4

REPORT INFORMATION
  Report Type: 
  Country: None (occurrence: None)
  Receive Date: 20071004
  Receipt Date: 20070925
  Transmission Date: 20080405
  Serious: Yes (Other)
  Sender: FDA-Public Use
  Company Number: US-PFIZER INC-2007080838

PATIENT
  Sex: Male
  Weight: 88.636 kg

DRUGS (10)
  1. CHANTIX [Suspect]
     Indication: SMOKING CESSATION THERAPY
     Route: 048
  2. ALL OTHER THERAPEUTIC PRODUCTS [Concomitant]
     Indication: CARDIAC DISORDER
  3. COUMADIN [Concomitant]
     Dosage: TEXT:3MG
  4. ASPIRIN [Concomitant]
  5. PLAVIX [Concomitant]
  6. METOPROLOL [Concomitant]
  7. LISINOPRIL [Concomitant]
  8. PAXIL [Concomitant]
     Indication: DEPRESSION
  9. MS CONTIN [Concomitant]
  10. HYDROCODONE [Concomitant]

REACTIONS (11)
  - ANOREXIA [None]
  - ANXIETY [None]
  - DEPRESSION [None]
  - DYSGEUSIA [None]
  - DYSKINESIA [None]
  - FRUSTRATION [None]
  - HOSTILITY [None]
  - INSOMNIA [None]
  - PARAESTHESIA [None]
  - PAROSMIA [None]
  - RETCHING [None]
